FAERS Safety Report 4766203-1 (Version None)
Quarter: 2005Q3

REPORT INFORMATION
  Report Type: 
  Country: None (occurrence: None)
  Receive Date: 20050912
  Receipt Date: 20050517
  Transmission Date: 20060218
  Serious: Yes (Hospitalization, Disabling)
  Sender: FDA-Public Use
  Company Number: US-MERCK-0505USA02127

PATIENT
  Age: 42 Year
  Sex: Male
  Weight: 91 kg

DRUGS (7)
  1. VIOXX [Suspect]
     Indication: OSTEOARTHRITIS
     Route: 048
     Dates: start: 19990901, end: 19990913
  2. VIOXX [Suspect]
     Route: 048
     Dates: start: 19990914, end: 20040930
  3. LORTAB [Concomitant]
     Route: 065
  4. XANAX [Concomitant]
     Route: 065
     Dates: start: 20010101
  5. ZOLOFT [Concomitant]
     Route: 065
     Dates: start: 20010101
  6. NORVASC [Concomitant]
     Route: 065
     Dates: start: 20000101, end: 20020101
  7. ALTACE [Concomitant]
     Route: 065
     Dates: start: 20000101, end: 20020101

REACTIONS (17)
  - ANAEMIA [None]
  - ANGINA PECTORIS [None]
  - ATOPY [None]
  - BACK INJURY [None]
  - BURSITIS [None]
  - CARDIAC MURMUR [None]
  - CHRONIC OBSTRUCTIVE PULMONARY DISEASE [None]
  - CORONARY ARTERY DISEASE [None]
  - ELECTROLYTE IMBALANCE [None]
  - GLUCOSE TOLERANCE IMPAIRED [None]
  - HAEMORRHOIDS [None]
  - HYPOTHYROIDISM [None]
  - MYOCARDIAL INFARCTION [None]
  - OVERWEIGHT [None]
  - SEXUAL DYSFUNCTION [None]
  - TONSILLITIS [None]
  - UPPER RESPIRATORY TRACT INFECTION BACTERIAL [None]
